FAERS Safety Report 21297038 (Version 1)
Quarter: 2022Q3

REPORT INFORMATION
  Report Type: Spontaneous
  Country: US (occurrence: None)
  Receive Date: 20220902
  Receipt Date: 20220902
  Transmission Date: 20221027
  Serious: Yes (Hospitalization)
  Sender: FDA-Public Use
  Company Number: None

PATIENT
  Age: 45 Year
  Sex: Male

DRUGS (1)
  1. LITHIUM CARBONATE [Suspect]
     Active Substance: LITHIUM CARBONATE
     Indication: Bipolar I disorder
     Dates: start: 20110401, end: 20220720

REACTIONS (4)
  - Agitation [None]
  - Confusional state [None]
  - Toxicity to various agents [None]
  - Toxicity to various agents [None]

NARRATIVE: CASE EVENT DATE: 20220720
